FAERS Safety Report 16382226 (Version 1)
Quarter: 2019Q2

REPORT INFORMATION
  Report Type: Report from Study
  Country: NL (occurrence: NL)
  Receive Date: 20190603
  Receipt Date: 20190603
  Transmission Date: 20190711
  Serious: Yes (Life-Threatening, Hospitalization, Disabling)
  Sender: FDA-Public Use
  Company Number: NL-ACCORD-130426

PATIENT
  Age: 69 Year
  Sex: Male

DRUGS (6)
  1. HYDROXYCHLOROQUINE [Concomitant]
     Active Substance: HYDROXYCHLOROQUINE
     Dosage: 200MG, 1X/D
     Dates: start: 20180404
  2. METHOTREXATE. [Suspect]
     Active Substance: METHOTREXATE
     Indication: RHEUMATOID ARTHRITIS
     Dosage: 20CMG, 1X/W
     Dates: start: 20171229, end: 20190215
  3. NAPROXEN. [Concomitant]
     Active Substance: NAPROXEN
     Dosage: 500MG, 2X/D
     Dates: start: 20170928, end: 20190215
  4. FOLIC ACID. [Concomitant]
     Active Substance: FOLIC ACID
     Dosage: 5MG, VOLGENS SCHEMA
     Dates: end: 20190215
  5. OMEPRAZOLE. [Concomitant]
     Active Substance: OMEPRAZOLE
     Dosage: 20MG, 1X/D
     Dates: start: 20180329
  6. PREDNISOLONE. [Concomitant]
     Active Substance: PREDNISOLONE
     Dosage: 10MG, 1X/D
     Dates: start: 20180329

REACTIONS (1)
  - Salmonella sepsis [Recovered/Resolved]

NARRATIVE: CASE EVENT DATE: 20190215
